FAERS Safety Report 8518019-8 (Version None)
Quarter: 2012Q3

REPORT INFORMATION
  Report Type: 
  Country: None (occurrence: None)
  Receive Date: 20120718
  Receipt Date: 20110804
  Transmission Date: 20120928
  Serious: No
  Sender: FDA-Public Use
  Company Number: US-BRISTOL-MYERS SQUIBB COMPANY-15948292

PATIENT
  Age: 67 Year
  Sex: Male

DRUGS (7)
  1. WARFARIN SODIUM [Suspect]
     Dates: start: 19810101
  2. VENLAFAXINE HCL [Concomitant]
  3. ZOLPIDEM [Concomitant]
  4. CLONAZEPAM [Concomitant]
  5. SIMVASTATIN [Concomitant]
  6. GLUCOSAMINE [Concomitant]
  7. VITAMIN A [Concomitant]

REACTIONS (3)
  - SKIN DISCOLOURATION [None]
  - SLEEP DISORDER [None]
  - DYSPEPSIA [None]
